FAERS Safety Report 15696808 (Version 3)
Quarter: 2019Q1

REPORT INFORMATION
  Report Type: Spontaneous
  Country: US (occurrence: US)
  Receive Date: 20181206
  Receipt Date: 20190110
  Transmission Date: 20190417
  Serious: No
  Sender: FDA-Public Use
  Company Number: US-PFIZER INC-2018493858

PATIENT
  Age: 45 Year
  Sex: Male

DRUGS (1)
  1. LYRICA [Suspect]
     Active Substance: PREGABALIN
     Dosage: 600 MG, DAILY (QTY 60 / DAY SUPPLY: 30)

REACTIONS (8)
  - Withdrawal syndrome [Unknown]
  - Nausea [Unknown]
  - Pain [Unknown]
  - Hyperhidrosis [Unknown]
  - Malaise [Unknown]
  - Abdominal discomfort [Unknown]
  - Influenza like illness [Unknown]
  - Diarrhoea [Unknown]
